FAERS Safety Report 7713042-5 (Version None)
Quarter: 2011Q3

REPORT INFORMATION
  Report Type: 
  Country: None (occurrence: None)
  Receive Date: 20110826
  Receipt Date: 20110823
  Transmission Date: 20111222
  Serious: Yes (Other)
  Sender: FDA-Public Use
  Company Number: JP-PFIZER INC-2011142289

PATIENT
  Age: 76 Year

DRUGS (1)
  1. ZOSYN [Suspect]
     Dosage: 4.5 G, 3X/DAY
     Route: 041

REACTIONS (1)
  - GLOMERULAR FILTRATION RATE DECREASED [None]
